FAERS Safety Report 11206526 (Version 1)
Quarter: 2015Q2

REPORT INFORMATION
  Report Type: Report from Study
  Country: US (occurrence: US)
  Receive Date: 20150622
  Receipt Date: 20150622
  Transmission Date: 20150821
  Serious: No
  Sender: FDA-Public Use
  Company Number: US-ABBVIE-15P-163-1372882-00

PATIENT
  Age: 59 Year
  Sex: Male
  Weight: 87.62 kg

DRUGS (1)
  1. VIEKIRA PAK [Suspect]
     Active Substance: DASABUVIR\OMBITASVIR\PARITAPREVIR\RITONAVIR
     Indication: HEPATITIS C
     Dosage: 3 AND 1
     Route: 048
     Dates: start: 20150310

REACTIONS (12)
  - Abdominal distension [Recovering/Resolving]
  - Dysphonia [Not Recovered/Not Resolved]
  - Oral disorder [Not Recovered/Not Resolved]
  - White blood cell count increased [Not Recovered/Not Resolved]
  - Blood glucose increased [Not Recovered/Not Resolved]
  - Rash [Not Recovered/Not Resolved]
  - Palmar erythema [Recovered/Resolved]
  - Weight decreased [Not Recovered/Not Resolved]
  - Dyspepsia [Recovering/Resolving]
  - Eructation [Recovering/Resolving]
  - Scab [Not Recovered/Not Resolved]
  - Fatigue [Not Recovered/Not Resolved]

NARRATIVE: CASE EVENT DATE: 201503
